FAERS Safety Report 23293370 (Version 1)
Quarter: 2023Q4

REPORT INFORMATION
  Report Type: Spontaneous
  Country: CN (occurrence: CN)
  Receive Date: 20231213
  Receipt Date: 20231213
  Transmission Date: 20240110
  Serious: Yes (Other)
  Sender: FDA-Public Use
  Company Number: None

PATIENT
  Age: 53 Year
  Sex: Female
  Weight: 70 kg

DRUGS (8)
  1. MANNITOL [Suspect]
     Active Substance: MANNITOL
     Indication: Neck injury
     Dosage: 100 ML TWICE DAILY, DOSAGE FORM: INJECTION
     Route: 041
     Dates: start: 20231105, end: 20231105
  2. MANNITOL [Suspect]
     Active Substance: MANNITOL
     Indication: Dehydration
  3. MANNITOL [Suspect]
     Active Substance: MANNITOL
     Indication: Swelling
  4. MANNITOL [Suspect]
     Active Substance: MANNITOL
     Indication: Nervous system disorder
  5. MANNITOL [Suspect]
     Active Substance: MANNITOL
     Indication: Oedema
  6. ETORICOXIB [Suspect]
     Active Substance: ETORICOXIB
     Indication: Neck injury
     Dosage: 60 MG ONCE DAILY
     Route: 048
     Dates: start: 20231105, end: 20231105
  7. ETORICOXIB [Suspect]
     Active Substance: ETORICOXIB
     Indication: Antiinflammatory therapy
  8. ETORICOXIB [Suspect]
     Active Substance: ETORICOXIB
     Indication: Analgesic therapy

REACTIONS (3)
  - Scratch [Unknown]
  - Pruritus [Recovered/Resolved]
  - Urticaria [Recovered/Resolved]

NARRATIVE: CASE EVENT DATE: 20231105
